FAERS Safety Report 20408582 (Version 1)
Quarter: 2022Q1

REPORT INFORMATION
  Report Type: Report from Study
  Country: CN (occurrence: CN)
  Receive Date: 20220201
  Receipt Date: 20220201
  Transmission Date: 20220424
  Serious: Yes (Other)
  Sender: FDA-Public Use
  Company Number: CN-KYOWAKIRIN-2022AKK000692

PATIENT
  Age: 52 Year
  Sex: Male

DRUGS (1)
  1. CINACALCET HYDROCHLORIDE [Suspect]
     Active Substance: CINACALCET HYDROCHLORIDE
     Indication: Hyperparathyroidism secondary
     Dosage: UNK
     Route: 048

REACTIONS (17)
  - Electrocardiogram QT prolonged [Recovered/Resolved]
  - Abdominal pain upper [Recovered/Resolved]
  - Abdominal distension [Recovered/Resolved]
  - Abdominal distension [Recovered/Resolved]
  - Gastrointestinal disorder [Recovered/Resolved]
  - Skin infection [Recovered/Resolved]
  - Dermatitis allergic [Recovered/Resolved]
  - Ecchymosis [Recovered/Resolved]
  - Dermatitis allergic [Recovered/Resolved]
  - Dermatitis allergic [Recovered/Resolved]
  - Sinus bradycardia [Recovered/Resolved]
  - Pharyngitis [Not Recovered/Not Resolved]
  - Hypercalcaemia [Recovered/Resolved]
  - Hypercalcaemia [Recovered/Resolved]
  - Hypercalcaemia [Recovered/Resolved]
  - Hypercalcaemia [Not Recovered/Not Resolved]
  - Hypertension [Recovered/Resolved]

NARRATIVE: CASE EVENT DATE: 20191015
